FAERS Safety Report 18542493 (Version 1)
Quarter: 2020Q4

REPORT INFORMATION
  Report Type: Spontaneous
  Country: CO (occurrence: CO)
  Receive Date: 20201125
  Receipt Date: 20201125
  Transmission Date: 20210114
  Serious: Yes (Other)
  Sender: FDA-Public Use
  Company Number: CO-EMD SERONO-9199829

PATIENT
  Age: 69 Year
  Sex: Female
  Weight: 96 kg

DRUGS (8)
  1. CALCIUM                            /00060701/ [Concomitant]
     Active Substance: CALCIUM
     Indication: PRODUCT USED FOR UNKNOWN INDICATION
  2. FEMARA [Suspect]
     Active Substance: LETROZOLE
     Indication: BREAST CANCER METASTATIC
     Dosage: STRENGTH: 2.5MG/IU
     Route: 048
     Dates: start: 201709, end: 202010
  3. FEMARA [Suspect]
     Active Substance: LETROZOLE
     Route: 048
     Dates: start: 20201031
  4. DIOVAN [Concomitant]
     Active Substance: VALSARTAN
     Indication: HYPERTENSION
     Route: 048
  5. LEVOTHYROXINE. [Concomitant]
     Active Substance: LEVOTHYROXINE
     Indication: PRODUCT USED FOR UNKNOWN INDICATION
  6. ZOLEDRONIC ACID [Suspect]
     Active Substance: ZOLEDRONIC ACID
     Indication: METASTASES TO SPINE
     Dosage: ONCE IN EVERY 3 MONTHS
     Route: 042
  7. VITAMIN D                          /00318501/ [Concomitant]
     Active Substance: CHOLECALCIFEROL
     Indication: PRODUCT USED FOR UNKNOWN INDICATION
  8. METFORMIN [Suspect]
     Active Substance: METFORMIN HYDROCHLORIDE
     Indication: TYPE 2 DIABETES MELLITUS
     Route: 048

REACTIONS (9)
  - Papilloma viral infection [Unknown]
  - Anogenital warts [Unknown]
  - Anxiety [Unknown]
  - Pain in extremity [Unknown]
  - Hypertrophic anal papilla [Unknown]
  - Back pain [Unknown]
  - Tumour marker increased [Unknown]
  - Arthralgia [Unknown]
  - Anogenital dysplasia [Unknown]

NARRATIVE: CASE EVENT DATE: 201909
